FAERS Safety Report 9485053 (Version 1)
Quarter: 2013Q3

REPORT INFORMATION
  Report Type: Spontaneous
  Country: US (occurrence: US)
  Receive Date: 20130828
  Receipt Date: 20130828
  Transmission Date: 20140515
  Serious: No
  Sender: FDA-Public Use
  Company Number: US-ABBOTT-13P-163-1125871-00

PATIENT
  Sex: Male
  Weight: 127.12 kg

DRUGS (8)
  1. ANDROGEL [Suspect]
     Indication: ASTHENIA
     Dosage: TWO PUMPS PER DAY
     Route: 062
     Dates: start: 201305
  2. ANDROGEL [Suspect]
     Indication: ERECTILE DYSFUNCTION
  3. ANDROGEL [Suspect]
     Indication: ERECTILE DYSFUNCTION
  4. METFORMIN [Concomitant]
     Indication: DIABETES MELLITUS
  5. LAMOTRIGINE [Concomitant]
     Indication: DEPRESSION
  6. MULTIVITAMIN [Concomitant]
     Indication: ROUTINE HEALTH MAINTENANCE
  7. OMEPRAZOLE [Concomitant]
     Indication: GASTROOESOPHAGEAL REFLUX DISEASE
  8. UNKNOWN CHOLESTEROL MEDICATION [Concomitant]
     Indication: BLOOD CHOLESTEROL INCREASED

REACTIONS (3)
  - Asthenia [Not Recovered/Not Resolved]
  - Off label use [Not Recovered/Not Resolved]
  - Incorrect dose administered [Unknown]
